FAERS Safety Report 8195583-2 (Version None)
Quarter: 2012Q1

REPORT INFORMATION
  Report Type: 
  Country: None (occurrence: None)
  Receive Date: 20120308
  Receipt Date: 20120306
  Transmission Date: 20120608
  Serious: Yes (Death, Life-Threatening, Hospitalization, Other)
  Sender: FDA-Public Use
  Company Number: US-ROXANE LABORATORIES, INC.-2012-RO-00804RO

PATIENT
  Sex: Female
  Weight: 91 kg

DRUGS (29)
  1. BEVACIZUMAB [Concomitant]
     Indication: AGE-RELATED MACULAR DEGENERATION
     Route: 031
  2. ZOLEDRONIC ACID [Concomitant]
     Indication: PROPHYLAXIS
     Route: 042
     Dates: start: 20100101
  3. FILGRASTIM [Concomitant]
     Indication: NEUTROPENIA
     Route: 058
  4. VENLAFAXINE [Concomitant]
     Indication: ANXIETY
     Dosage: 150 MG
     Route: 048
     Dates: start: 20100101
  5. FAMOTIDINE [Concomitant]
     Indication: GASTROOESOPHAGEAL REFLUX DISEASE
     Dosage: 40 MG
     Route: 048
     Dates: start: 20100101
  6. MACULAR DEGENERATION SUPPLEMENT [Concomitant]
     Indication: AGE-RELATED MACULAR DEGENERATION
     Route: 048
     Dates: start: 20100101
  7. HOMATROPINE/HYDROCODONE [Concomitant]
     Indication: BRONCHITIS
     Route: 048
     Dates: start: 20120103
  8. AZITHROMYCIN [Concomitant]
     Indication: EAR PAIN
  9. ARRY-520 [Suspect]
     Indication: MULTIPLE MYELOMA
     Route: 042
     Dates: start: 20111122, end: 20120111
  10. BENZONATATE [Concomitant]
     Indication: BRONCHITIS
  11. SULFAMETHOXAZOLE AND TRIMETHOPRIM [Concomitant]
     Indication: PROPHYLAXIS
     Route: 048
     Dates: start: 20120103
  12. ENOXAPARIN [Concomitant]
     Indication: DEEP VEIN THROMBOSIS
     Route: 058
     Dates: start: 20120116, end: 20120119
  13. PANTOPRAZOLE [Concomitant]
     Indication: GASTROOESOPHAGEAL REFLUX DISEASE
     Dosage: 40 MG
     Route: 048
     Dates: start: 20100101, end: 20120101
  14. ACYCLOVIR [Concomitant]
     Indication: PROPHYLAXIS
     Dosage: 800 MG
     Route: 048
  15. BENZONATATE [Concomitant]
     Indication: COUGH
     Route: 048
     Dates: start: 20120103
  16. AZITHROMYCIN [Concomitant]
     Indication: COUGH
  17. DEXAMETHASONE [Suspect]
     Indication: MULTIPLE MYELOMA
     Route: 048
     Dates: start: 20111122, end: 20120111
  18. ROPINIROLE [Concomitant]
     Indication: RESTLESS LEGS SYNDROME
     Dosage: 4 MG
     Route: 048
     Dates: start: 20100101
  19. POTASSIUM [Concomitant]
     Indication: PROPHYLAXIS
     Dosage: 20 MEQ
     Route: 048
     Dates: start: 20100101
  20. HOMATROPINE/HYDROCODONE [Concomitant]
     Indication: COUGH
  21. AZITHROMYCIN [Concomitant]
     Indication: SINUSITIS
     Dosage: 500 MG
     Route: 048
     Dates: start: 20120109, end: 20120113
  22. AZITHROMYCIN [Concomitant]
     Indication: BRONCHITIS
  23. FLUTICASONE PROPIONATE [Concomitant]
  24. GABAPENTIN [Concomitant]
     Indication: NEUROPATHY PERIPHERAL
     Dosage: 900 MG
     Route: 048
     Dates: start: 20100101
  25. GENTAMICIN [Concomitant]
     Indication: CONJUNCTIVITIS
     Dates: start: 20120103, end: 20120111
  26. ALBUTEROL [Concomitant]
     Indication: BRONCHITIS
     Route: 055
     Dates: start: 20120103
  27. WARFARIN SODIUM [Concomitant]
     Indication: DEEP VEIN THROMBOSIS
     Dates: start: 20120117
  28. VERAPAMIL [Concomitant]
     Indication: MIGRAINE
     Dosage: 240 MG
     Route: 048
     Dates: start: 20100101
  29. OLOPATADINE HCL [Concomitant]

REACTIONS (7)
  - ACUTE RESPIRATORY DISTRESS SYNDROME [None]
  - SEPSIS [None]
  - ENCEPHALOPATHY [None]
  - SEPTIC SHOCK [None]
  - MULTI-ORGAN FAILURE [None]
  - RECTAL HAEMORRHAGE [None]
  - DELIRIUM [None]
